FAERS Safety Report 12260318 (Version 2)
Quarter: 2017Q2

REPORT INFORMATION
  Report Type: Spontaneous
  Country: US (occurrence: US)
  Receive Date: 20160412
  Receipt Date: 20170412
  Transmission Date: 20170830
  Serious: No
  Sender: FDA-Public Use
  Company Number: US-SA-2015SA221334

PATIENT
  Age: 61 Year
  Sex: Female
  Weight: 150 kg

DRUGS (1)
  1. ALLEGRA ALLERGY [Suspect]
     Active Substance: FEXOFENADINE HYDROCHLORIDE
     Dosage: STARTED SEVERAL YEARS AGO, ON ALLEGRA SINCE MANY YEARS
     Route: 048

REACTIONS (1)
  - Pruritus [Recovered/Resolved]
